FAERS Safety Report 7933820-7 (Version None)
Quarter: 2011Q4

REPORT INFORMATION
  Report Type: 
  Country: None (occurrence: None)
  Receive Date: 20111122
  Receipt Date: 20111118
  Transmission Date: 20120403
  Serious: Yes (Hospitalization)
  Sender: FDA-Public Use
  Company Number: PHEH2011US009823

PATIENT
  Age: 21 Year
  Sex: Female
  Weight: 49.887 kg

DRUGS (2)
  1. PULMOZYME [Concomitant]
  2. TOBI [Suspect]
     Indication: CYSTIC FIBROSIS
     Dosage: 300 MG, TWICE DAILY IN A CYCLE OF 28 DAYS ON AND 28 DAYS OFF
     Dates: start: 20110908

REACTIONS (1)
  - INFECTION [None]
